FAERS Safety Report 10006962 (Version 2)
Quarter: 2014Q1

REPORT INFORMATION
  Report Type: Spontaneous
  Country: US (occurrence: US)
  Receive Date: 20140313
  Receipt Date: 20140313
  Transmission Date: 20141002
  Serious: No
  Sender: FDA-Public Use
  Company Number: US-GILEAD-2012-0065992

PATIENT
  Age: 75 Year
  Sex: Male

DRUGS (2)
  1. LETAIRIS [Suspect]
     Indication: COR PULMONALE CHRONIC
     Dosage: 5 MG, QD
     Route: 048
     Dates: start: 201209, end: 20121201
  2. ADCIRCA [Concomitant]
     Indication: COR PULMONALE CHRONIC
     Dosage: UNK UNK, QD

REACTIONS (1)
  - Local swelling [Recovering/Resolving]
